FAERS Safety Report 7152541-4 (Version None)
Quarter: 2010Q4

REPORT INFORMATION
  Report Type: 
  Country: None (occurrence: None)
  Receive Date: 20101126
  Receipt Date: 20101117
  Transmission Date: 20110411
  Serious: Yes (Other)
  Sender: FDA-Public Use
  Company Number: 1000017390

PATIENT
  Sex: Female

DRUGS (4)
  1. LEXAPRO [Suspect]
  2. TOVIAZ [Suspect]
  3. XANAX [Suspect]
  4. LEVAQUIN [Suspect]

REACTIONS (1)
  - CATARACT [None]
